FAERS Safety Report 15840621 (Version 4)
Quarter: 2019Q2

REPORT INFORMATION
  Report Type: Spontaneous
  Country: US (occurrence: US)
  Receive Date: 20190118
  Receipt Date: 20190626
  Transmission Date: 20190711
  Serious: No
  Sender: FDA-Public Use
  Company Number: US-BIOGEN-2019BI00681951

PATIENT
  Sex: Female

DRUGS (1)
  1. TYSABRI [Suspect]
     Active Substance: NATALIZUMAB
     Indication: MULTIPLE SCLEROSIS
     Route: 050
     Dates: start: 20181227

REACTIONS (11)
  - Visual impairment [Not Recovered/Not Resolved]
  - Gait disturbance [Unknown]
  - Pain in extremity [Not Recovered/Not Resolved]
  - Nausea [Unknown]
  - Memory impairment [Not Recovered/Not Resolved]
  - Rash papular [Recovered/Resolved]
  - Sensory disturbance [Not Recovered/Not Resolved]
  - Abdominal discomfort [Unknown]
  - Eating disorder [Unknown]
  - Urticaria [Recovered/Resolved]
  - Multiple sclerosis relapse [Not Recovered/Not Resolved]
